FAERS Safety Report 8235872-6 (Version None)
Quarter: 2012Q1

REPORT INFORMATION
  Report Type: 
  Country: None (occurrence: None)
  Receive Date: 20120326
  Receipt Date: 20120323
  Transmission Date: 20120608
  Serious: No
  Sender: FDA-Public Use
  Company Number: US-PFIZER INC-2012054694

PATIENT
  Sex: Female
  Weight: 58.05 kg

DRUGS (3)
  1. ZYRTEC [Concomitant]
     Dosage: UNK
  2. CHANTIX [Suspect]
     Dosage: 1 MG, 2X/DAY
     Route: 048
     Dates: start: 20120201
  3. CHANTIX [Suspect]
     Indication: SMOKING CESSATION THERAPY
     Dosage: 0.5 MG, 1X/DAY
     Route: 048
     Dates: start: 20120222, end: 20120201

REACTIONS (5)
  - DRUG EFFECT DECREASED [None]
  - APATHY [None]
  - NERVOUSNESS [None]
  - OBSESSIVE THOUGHTS [None]
  - DYSGEUSIA [None]
